FAERS Safety Report 11367969 (Version 1)
Quarter: 2015Q3

REPORT INFORMATION
  Report Type: Spontaneous
  Country: US (occurrence: None)
  Receive Date: 20150811
  Receipt Date: 20150811
  Transmission Date: 20151125
  Serious: Yes (Other)
  Sender: FDA-Public Use
  Company Number: None

PATIENT
  Age: 52 Year
  Sex: Female
  Weight: 87.09 kg

DRUGS (9)
  1. LYRICA [Suspect]
     Active Substance: PREGABALIN
     Indication: FIBROMYALGIA
     Dosage: 3 PILLS
     Route: 048
     Dates: start: 20110611, end: 20150809
  2. MAG OXIDE [Concomitant]
     Active Substance: MAGNESIUM OXIDE
  3. ZOLOFT [Concomitant]
     Active Substance: SERTRALINE HYDROCHLORIDE
  4. OMEPRAZOLE. [Concomitant]
     Active Substance: OMEPRAZOLE
  5. LISINOPRIL. [Concomitant]
     Active Substance: LISINOPRIL
  6. LYRICA [Suspect]
     Active Substance: PREGABALIN
     Indication: SCOLIOSIS
     Dosage: 3 PILLS
     Route: 048
     Dates: start: 20110611, end: 20150809
  7. METFORMIN [Concomitant]
     Active Substance: METFORMIN HYDROCHLORIDE
  8. LYRICA [Suspect]
     Active Substance: PREGABALIN
     Indication: PAIN
     Dosage: 3 PILLS
     Route: 048
     Dates: start: 20110611, end: 20150809
  9. LOTATAB [Concomitant]

REACTIONS (9)
  - Bladder disorder [None]
  - Abasia [None]
  - Pain [None]
  - Diarrhoea [None]
  - Anxiety [None]
  - Asthenia [None]
  - Restlessness [None]
  - Heart rate increased [None]
  - Insomnia [None]

NARRATIVE: CASE EVENT DATE: 20150807
